FAERS Safety Report 10506690 (Version 1)
Quarter: 2014Q3

REPORT INFORMATION
  Report Type: Spontaneous
  Country: US (occurrence: None)
  Receive Date: 20140915
  Receipt Date: 20140915
  Transmission Date: 20150326
  Serious: Yes (Hospitalization, Other)
  Sender: FDA-Public Use
  Company Number: 2013-US-003095

PATIENT
  Age: 30 Year
  Sex: Male

DRUGS (4)
  1. HYDROCODONE/ACETAMINOPHEN (HYDROCODONE, PARACETAMOL) TABLET [Concomitant]
  2. NASONEX [Concomitant]
     Active Substance: MOMETASONE FUROATE
  3. CYCLOBENZAPRINE HCL (CYCLOBENZAPRINE HYDROCHLORIDE) [Concomitant]
  4. XYREM [Suspect]
     Active Substance: SODIUM OXYBATE
     Indication: NARCOLEPSY
     Route: 048
     Dates: start: 201205, end: 2012

REACTIONS (7)
  - Anxiety [None]
  - Memory impairment [None]
  - Parasomnia [None]
  - Confusional state [None]
  - Suicidal ideation [None]
  - Disorientation [None]
  - Depressed level of consciousness [None]

NARRATIVE: CASE EVENT DATE: 20131105
